FAERS Safety Report 15897385 (Version 4)
Quarter: 2019Q1

REPORT INFORMATION
  Report Type: Report from Study
  Country: US (occurrence: US)
  Receive Date: 20190131
  Receipt Date: 20190228
  Transmission Date: 20190417
  Serious: Yes (Hospitalization)
  Sender: FDA-Public Use
  Company Number: US-BAUSCH-BL-2019-003079

PATIENT
  Sex: Male

DRUGS (2)
  1. XENAZINE [Suspect]
     Active Substance: TETRABENAZINE
     Indication: PRODUCT USED FOR UNKNOWN INDICATION
     Route: 048
     Dates: start: 20171024, end: 2018
  2. XENAZINE [Suspect]
     Active Substance: TETRABENAZINE
     Dosage: RESTARTED
     Route: 048

REACTIONS (6)
  - Cardiac failure [Unknown]
  - Dehydration [Unknown]
  - Therapy cessation [Unknown]
  - Renal failure [Unknown]
  - Product availability issue [Unknown]
  - Pneumonia [Unknown]

NARRATIVE: CASE EVENT DATE: 2018
